FAERS Safety Report 24035859 (Version 4)
Quarter: 2024Q3

REPORT INFORMATION
  Report Type: Report from Study
  Country: CA (occurrence: CA)
  Receive Date: 20240701
  Receipt Date: 20240726
  Transmission Date: 20241016
  Serious: Yes (Hospitalization, Other)
  Sender: NOVARTIS
  Company Number: CA-002147023-NVSC2024CA134660

PATIENT
  Age: 69 Year
  Sex: Female
  Weight: 69 kg

DRUGS (5)
  1. SCEMBLIX [Suspect]
     Active Substance: ASCIMINIB HYDROCHLORIDE
     Indication: Philadelphia positive acute lymphocytic leukaemia
     Dosage: 200 MG, BID
     Route: 048
     Dates: start: 20230803
  2. SCEMBLIX [Suspect]
     Active Substance: ASCIMINIB HYDROCHLORIDE
     Dosage: 200 MG, BID
     Route: 048
     Dates: start: 20240623
  3. AMIPRIL [Concomitant]
     Indication: Hypertension
     Dosage: 5 (UNSPECIFIED YEAR)
     Route: 065
  4. CYCLOPHOSPHAMIDE\CYTARABINE\DEXAMETHASONE\DOXORUBICIN\METHOTREXATE\VIN [Concomitant]
     Active Substance: CYCLOPHOSPHAMIDE\CYTARABINE\DEXAMETHASONE\DOXORUBICIN\METHOTREXATE\VINCRISTINE
     Indication: Product used for unknown indication
     Dosage: UNK
     Route: 065
  5. BLINATUMOMAB [Concomitant]
     Active Substance: BLINATUMOMAB
     Indication: Product used for unknown indication
     Dosage: UNK, CYCLIC
     Route: 065
     Dates: end: 202310

REACTIONS (7)
  - Cerebrovascular accident [Not Recovered/Not Resolved]
  - Herpes zoster disseminated [Not Recovered/Not Resolved]
  - Encephalitis [Not Recovered/Not Resolved]
  - Meningomyelitis herpes [Recovering/Resolving]
  - Adverse drug reaction [Unknown]
  - Road traffic accident [Unknown]
  - Confusional state [Unknown]

NARRATIVE: CASE EVENT DATE: 20240601
